FAERS Safety Report 6641208-4 (Version None)
Quarter: 2010Q1

REPORT INFORMATION
  Report Type: 
  Country: None (occurrence: None)
  Receive Date: 20100303
  Receipt Date: 20090629
  Transmission Date: 20100710
  Serious: Yes (Other)
  Sender: FDA-Public Use
  Company Number: 641320

PATIENT
  Age: 66 Year
  Sex: Female

DRUGS (5)
  1. BONIVA [Suspect]
     Indication: OSTEOPOROSIS
     Dosage: 3 MG 1 PER 12 WEEK INTRAVENOUS
     Route: 042
     Dates: start: 20090402
  2. SYNTHROID [Concomitant]
  3. CALTRATE + D (*CALCIUM/*CALCIUM CARBONATE/*CHOLECALCIFEROL/*PARICALCIT [Concomitant]
  4. PREDNISONE TAB [Concomitant]
  5. FLECTOR (DICLOFENAC) [Concomitant]

REACTIONS (6)
  - INJECTION SITE EXTRAVASATION [None]
  - INJECTION SITE MASS [None]
  - INJECTION SITE REACTION [None]
  - INJECTION SITE THROMBOSIS [None]
  - INJECTION SITE WARMTH [None]
  - VASCULAR RUPTURE [None]
